FAERS Safety Report 8191739-3 (Version None)
Quarter: 2012Q1

REPORT INFORMATION
  Report Type: 
  Country: None (occurrence: None)
  Receive Date: 20120307
  Receipt Date: 20120304
  Transmission Date: 20120608
  Serious: Yes (Death)
  Sender: FDA-Public Use
  Company Number: IT-PFIZER INC-2012052202

PATIENT
  Age: 75 Year
  Sex: Male

DRUGS (2)
  1. ENALAPRIL MALEATE [Concomitant]
     Indication: HYPERTENSION
     Dosage: 5 MG, 1X/DAY
     Dates: start: 20080101
  2. SUTENT [Suspect]
     Indication: METASTATIC RENAL CELL CARCINOMA
     Dosage: 37.5 MG, UNK
     Dates: end: 20111101

REACTIONS (2)
  - DISEASE PROGRESSION [None]
  - METASTATIC RENAL CELL CARCINOMA [None]
